FAERS Safety Report 7335787-1 (Version None)
Quarter: 2011Q1

REPORT INFORMATION
  Report Type: 
  Country: None (occurrence: None)
  Receive Date: 20110301
  Receipt Date: 20110301
  Transmission Date: 20110831
  Serious: No
  Sender: FDA-Public Use
  Company Number: None

PATIENT
  Sex: Female
  Weight: 60.36 kg

DRUGS (4)
  1. BEVACIZUMAB (RHUMAB VEGF) [Suspect]
     Dosage: 990 MG
  2. FLUOROURACIL [Suspect]
     Dosage: 12596 MG
  3. IRIONTECAN (CPT- 11, CAMPTOSAR) [Suspect]
     Dosage: 831 MG
  4. LEUCOVORIN CALCIUM [Suspect]
     Dosage: 2076 MG

REACTIONS (1)
  - STAPHYLOCOCCAL SKIN INFECTION [None]
